FAERS Safety Report 18158047 (Version 1)
Quarter: 2020Q3

REPORT INFORMATION
  Report Type: Spontaneous
  Country: US (occurrence: US)
  Receive Date: 20200817
  Receipt Date: 20200817
  Transmission Date: 20201103
  Serious: No
  Sender: FDA-Public Use
  Company Number: US-MEDEXUS PHARMA, INC.-2020MED00129

PATIENT
  Age: 60 Year
  Sex: Male
  Weight: 63.49 kg

DRUGS (4)
  1. HUMIRA [Concomitant]
     Active Substance: ADALIMUMAB
  2. RASUVO [Suspect]
     Active Substance: METHOTREXATE SODIUM
     Indication: ARTHRITIS
     Dosage: 15 MG, 1X/WEEK ON WEDNESDAYS INJECTED INTO LEFT LEG
     Dates: start: 20200226
  3. LEUCOVORIN CALCIUM. [Concomitant]
     Active Substance: LEUCOVORIN CALCIUM
  4. UNSPECIFIED MEDICATIONS [Concomitant]
     Active Substance: UNSPECIFIED INGREDIENT

REACTIONS (6)
  - Incorrect dose administered by device [Recovered/Resolved]
  - Injection site erythema [Recovered/Resolved]
  - Device malfunction [Recovered/Resolved]
  - Device failure [Recovered/Resolved]
  - Accidental exposure to product [Recovered/Resolved]
  - Injection site papule [Recovered/Resolved]

NARRATIVE: CASE EVENT DATE: 20200506
